FAERS Safety Report 10373912 (Version 1)
Quarter: 2014Q1

REPORT INFORMATION
  Report Type: Spontaneous
  Country: US (occurrence: None)
  Receive Date: 20140306
  Receipt Date: 20140306
  Transmission Date: 20141002
  Serious: Yes (Hospitalization)
  Sender: FDA-Public Use
  Company Number: 163-21880-13011032

PATIENT
  Age: 67 Year
  Sex: Female
  Weight: 122.5 kg

DRUGS (8)
  1. REVLIMID [Suspect]
     Indication: PLASMA CELL MYELOMA
     Dosage: UNKNOWN - UNKNOWN
     Route: 048
  2. ELOTUZUMAB [Suspect]
     Indication: PLASMA CELL MYELOMA
     Dosage: UNK?UNKNOWN - UNKNOWN
  3. DEXAMETHASONE [Suspect]
     Indication: PLASMA CELL MYELOMA
     Dosage: 12-AUG-2012 - UNKNOWN
     Dates: start: 20120812
  4. GLUCOPHAGE (METFORMIN HYDROCHLORIDE) [Concomitant]
  5. NOVOLOG (INSULIN ASPART) [Concomitant]
  6. AUGMENTIN [Concomitant]
  7. CYCLOPHOSPHAMIDE [Concomitant]
  8. LOVENOX (HEPARIN-FRACTION, SODIUM SALT) [Concomitant]

REACTIONS (1)
  - Pneumonia [None]
